FAERS Safety Report 8112649-3 (Version None)
Quarter: 2012Q1

REPORT INFORMATION
  Report Type: 
  Country: None (occurrence: None)
  Receive Date: 20120203
  Receipt Date: 20120125
  Transmission Date: 20120608
  Serious: Yes (Death, Hospitalization)
  Sender: FDA-Public Use
  Company Number: CR-ROCHE-1032393

PATIENT
  Sex: Female

DRUGS (1)
  1. MABTHERA [Suspect]
     Indication: NON-HODGKIN'S LYMPHOMA
     Route: 042
     Dates: start: 20110727

REACTIONS (4)
  - NON-HODGKIN'S LYMPHOMA [None]
  - NEOPLASM PROGRESSION [None]
  - DISEASE PROGRESSION [None]
  - IMMUNODEFICIENCY [None]
